FAERS Safety Report 7221714-4 (Version None)
Quarter: 2011Q1

REPORT INFORMATION
  Report Type: 
  Country: None (occurrence: None)
  Receive Date: 20110112
  Receipt Date: 20110103
  Transmission Date: 20110831
  Serious: Yes (Hospitalization, Other)
  Sender: FDA-Public Use
  Company Number: FR-ASTRAZENECA-2011SE00471

PATIENT
  Age: 24298 Day
  Sex: Male

DRUGS (21)
  1. AMIODARONE [Suspect]
     Route: 048
     Dates: start: 20030620, end: 20041001
  2. EZETROL [Suspect]
     Route: 048
     Dates: start: 20060131, end: 20080129
  3. CRESTOR [Concomitant]
     Route: 048
     Dates: start: 20090101, end: 20090112
  4. QUESTRAN [Concomitant]
     Dates: start: 20080131, end: 20080221
  5. SMECTA [Concomitant]
     Dosage: OCCASIONALLY
  6. PREVISCAN [Suspect]
     Dosage: BETWEEN 5 AND 10 MG DAILY
     Route: 048
  7. KARDEGIC [Concomitant]
     Dates: start: 20030620, end: 20061208
  8. PROCORALAN [Concomitant]
     Dates: start: 20100505
  9. VASTEN [Concomitant]
     Dates: start: 20030620, end: 20050503
  10. SPASFON [Concomitant]
     Dosage: OCCASIONALLY
  11. ATACAND [Suspect]
     Route: 048
     Dates: start: 20030620
  12. LIPANTHYL [Concomitant]
     Dates: start: 20051212, end: 20060101
  13. CORDARONE [Suspect]
     Route: 048
     Dates: start: 20070528, end: 20091001
  14. KARDEGIC [Concomitant]
     Dates: start: 20061209
  15. CARDENSIEL [Concomitant]
     Dates: start: 20091107, end: 20100504
  16. SIMVASTATIN [Concomitant]
     Dates: start: 20050823, end: 20050912
  17. LIPANTHYL [Concomitant]
     Dates: start: 20051017, end: 20051211
  18. LESCOL [Concomitant]
     Dates: start: 20050531, end: 20050720
  19. KLIPPAL CODEINE [Concomitant]
     Dosage: 1 TO 2 TABLETS DAILY AS REQUIRED
     Dates: start: 20100801
  20. LOPERAMIDE [Concomitant]
     Dosage: OCCASIONALLY
  21. TIORFAN [Concomitant]
     Dosage: OCCASIONALLY

REACTIONS (2)
  - PANCREATITIS CHRONIC [None]
  - CHRONIC HEPATITIS [None]
